FAERS Safety Report 6253117-3 (Version None)
Quarter: 2009Q2

REPORT INFORMATION
  Report Type: 
  Country: None (occurrence: None)
  Receive Date: 20090602
  Receipt Date: 20090602
  Transmission Date: 20091009
  Serious: Yes (Hospitalization)
  Sender: FDA-Public Use
  Company Number: None

PATIENT
  Sex: Male
  Weight: 87 kg

DRUGS (1)
  1. XTREME TREN-XXL 30 MG [Suspect]

REACTIONS (5)
  - APHASIA [None]
  - CEREBRAL INFARCTION [None]
  - COGNITIVE DISORDER [None]
  - CONFUSIONAL STATE [None]
  - HEAD INJURY [None]
